FAERS Safety Report 6302794-7 (Version None)
Quarter: 2009Q3

REPORT INFORMATION
  Report Type: 
  Country: None (occurrence: None)
  Receive Date: 20090810
  Receipt Date: 20090618
  Transmission Date: 20100115
  Serious: No
  Sender: FDA-Public Use
  Company Number: A0781305A

PATIENT
  Age: 8 Year
  Sex: Female

DRUGS (1)
  1. ALTABAX [Suspect]
     Route: 061
     Dates: start: 20090427, end: 20090428

REACTIONS (12)
  - APPLICATION SITE IRRITATION [None]
  - APPLICATION SITE PAIN [None]
  - BLISTER [None]
  - CRYING [None]
  - ERYTHEMA [None]
  - MUSCULOSKELETAL PAIN [None]
  - NONSPECIFIC REACTION [None]
  - PAIN [None]
  - PARAESTHESIA [None]
  - RASH [None]
  - SKIN CHAPPED [None]
  - SWELLING [None]
